FAERS Safety Report 24664462 (Version 2)
Quarter: 2025Q4

REPORT INFORMATION
  Report Type: Spontaneous
  Country: US (occurrence: US)
  Receive Date: 20241126
  Receipt Date: 20251008
  Transmission Date: 20260118
  Serious: Yes (Other)
  Sender: CHATTEM
  Company Number: US-OPELLA-2024OHG039152

PATIENT
  Age: 58 Year
  Sex: Male
  Weight: 70.76 kg

DRUGS (1)
  1. GOLD BOND ORIGINAL STRENGTH [Suspect]
     Active Substance: MENTHOL
     Indication: Product used for unknown indication

REACTIONS (12)
  - Type V hyperlipidaemia [Unknown]
  - Polyarthritis [Unknown]
  - Pleural mesothelioma malignant [Unknown]
  - Sarcomatoid mesothelioma [Unknown]
  - Seasonal allergy [Unknown]
  - Back pain [Unknown]
  - Pleural thickening [Unknown]
  - Rash pruritic [Unknown]
  - Myalgia [Unknown]
  - Grief reaction [Unknown]
  - Skin candida [Unknown]
  - Exposure to chemical pollution [Unknown]

NARRATIVE: CASE EVENT DATE: 20221019
